FAERS Safety Report 7702828-9 (Version None)
Quarter: 2011Q3

REPORT INFORMATION
  Report Type: 
  Country: None (occurrence: None)
  Receive Date: 20110823
  Receipt Date: 20110818
  Transmission Date: 20111222
  Serious: Yes (Death, Hospitalization)
  Sender: FDA-Public Use
  Company Number: FR-JNJFOC-20110808559

PATIENT
  Sex: Female
  Weight: 67 kg

DRUGS (8)
  1. DOXORUBICIN HCL [Suspect]
     Dosage: SAME DOSE WAS ADMINISTERED ON DAY 1 AND DAY 21
     Route: 042
     Dates: start: 20110111, end: 20110525
  2. NEURONTIN [Concomitant]
     Indication: PRODUCT USED FOR UNKNOWN INDICATION
     Route: 065
  3. DOXORUBICIN HCL [Suspect]
     Dosage: FROM COURSE NUMBER 4 TO COURSE NUMBER 7
     Route: 042
     Dates: start: 20110111, end: 20110525
  4. DURAGESIC-100 [Suspect]
     Indication: PRODUCT USED FOR UNKNOWN INDICATION
     Route: 062
  5. DOXORUBICIN HCL [Suspect]
     Indication: BREAST CANCER METASTATIC
     Dosage: AS A 4LH LINE THERAPY; FROM THE CURE NUMBER 1 TO THE CURE NUMBER 3
     Route: 042
     Dates: start: 20090708, end: 20110111
  6. ACETAMINOPHEN [Concomitant]
     Indication: PAIN
     Route: 065
  7. CYCLOPHOSPHAMIDE [Suspect]
     Indication: BREAST CANCER
     Route: 042
     Dates: start: 20110111, end: 20110525
  8. AMITRIPTYLINE HCL [Concomitant]
     Indication: PRODUCT USED FOR UNKNOWN INDICATION
     Route: 065

REACTIONS (4)
  - ANAEMIA [None]
  - EJECTION FRACTION DECREASED [None]
  - CARDIOGENIC SHOCK [None]
  - DYSPNOEA [None]
